FAERS Safety Report 23145906 (Version 2)
Quarter: 2023Q4

REPORT INFORMATION
  Report Type: Spontaneous
  Country: HU (occurrence: None)
  Receive Date: 20231104
  Receipt Date: 20231215
  Transmission Date: 20240109
  Serious: Yes (Hospitalization, Other)
  Sender: FDA-Public Use
  Company Number: HU-ROCHE-3447173

PATIENT
  Age: 13 Year
  Sex: Female

DRUGS (1)
  1. EVRYSDI [Suspect]
     Active Substance: RISDIPLAM
     Indication: Spinal muscular atrophy
     Route: 048
     Dates: start: 202102

REACTIONS (4)
  - Mucosal pain [Recovered/Resolved]
  - Oedema mucosal [Recovering/Resolving]
  - Epulis [Unknown]
  - Mass [Unknown]

NARRATIVE: CASE EVENT DATE: 20230101
